FAERS Safety Report 24905609 (Version 1)
Quarter: 2025Q1

REPORT INFORMATION
  Report Type: Report from Study
  Country: US (occurrence: US)
  Receive Date: 20250130
  Receipt Date: 20250130
  Transmission Date: 20250409
  Serious: Yes (Hospitalization)
  Sender: ABBVIE
  Company Number: US-ABBVIE-5895355

PATIENT
  Age: 81 Year
  Sex: Female

DRUGS (1)
  1. HUMIRA [Suspect]
     Active Substance: ADALIMUMAB
     Indication: Crohn^s disease
     Route: 058
     Dates: start: 20240306, end: 20241225

REACTIONS (8)
  - Inguinal mass [Recovered/Resolved]
  - Ageusia [Not Recovered/Not Resolved]
  - Fungal infection [Not Recovered/Not Resolved]
  - Therapeutic product effect incomplete [Unknown]
  - Abdominal pain [Recovered/Resolved]
  - Dysgeusia [Not Recovered/Not Resolved]
  - Oropharyngeal pain [Not Recovered/Not Resolved]
  - Cough [Recovering/Resolving]

NARRATIVE: CASE EVENT DATE: 20240101
